FAERS Safety Report 26088235 (Version 1)
Quarter: 2025Q4

REPORT INFORMATION
  Report Type: Spontaneous
  Country: CN (occurrence: CN)
  Receive Date: 20251125
  Receipt Date: 20251125
  Transmission Date: 20260117
  Serious: Yes (Other)
  Sender: NOVO NORDISK
  Company Number: CN-NOVOPROD-1568028

PATIENT
  Age: 59 Year
  Sex: Male
  Weight: 75 kg

DRUGS (2)
  1. NOVORAPID [Suspect]
     Active Substance: INSULIN ASPART
     Indication: Type 2 diabetes mellitus
     Dosage: 20 IU, QD (10 IU EACH IN THE MORNING AND MIDDAY)
  2. INSULIN ASPART [Suspect]
     Active Substance: INSULIN ASPART
     Indication: Type 2 diabetes mellitus
     Dosage: 15 IU, QD (IN EVENING)

REACTIONS (6)
  - Retinal haemorrhage [Unknown]
  - Renal disorder [Unknown]
  - Diabetic complication [Unknown]
  - Hypoglycaemic unconsciousness [Unknown]
  - Hypoglycaemia [Unknown]
  - Vomiting [Unknown]
